FAERS Safety Report 16649320 (Version 1)
Quarter: 2019Q3

REPORT INFORMATION
  Report Type: Spontaneous
  Country: US (occurrence: US)
  Receive Date: 20190730
  Receipt Date: 20190730
  Transmission Date: 20191004
  Serious: Yes (Other)
  Sender: FDA-Public Use
  Company Number: US-PFIZER INC-2019307517

PATIENT
  Age: 6 Year
  Sex: Male
  Weight: 15.2 kg

DRUGS (1)
  1. CHILDRENS ROBITUSSIN COUGH AND CHEST CONGESTION DM [Suspect]
     Active Substance: DEXTROMETHORPHAN HYDROBROMIDE\GUAIFENESIN
     Indication: COUGH
     Dosage: 5 ML, 1X/DAY
     Route: 048
     Dates: start: 20190706, end: 20190713

REACTIONS (10)
  - Rash generalised [Unknown]
  - Mobility decreased [Unknown]
  - Headache [Unknown]
  - Weight decreased [Unknown]
  - Bone pain [Not Recovered/Not Resolved]
  - Hallucination [Recovered/Resolved]
  - Cognitive disorder [Unknown]
  - Decreased appetite [Unknown]
  - Pyrexia [Not Recovered/Not Resolved]
  - Cough [Not Recovered/Not Resolved]

NARRATIVE: CASE EVENT DATE: 20190713
